FAERS Safety Report 21937881 (Version 1)
Quarter: 2023Q1

REPORT INFORMATION
  Report Type: Spontaneous
  Country: US (occurrence: None)
  Receive Date: 20230201
  Receipt Date: 20230201
  Transmission Date: 20230418
  Serious: Yes (Life-Threatening, Disabling)
  Sender: FDA-Public Use
  Company Number: None

PATIENT
  Age: 57 Year
  Sex: 0
  Weight: 72 kg

DRUGS (9)
  1. PROPOFOL [Suspect]
     Active Substance: PROPOFOL
     Indication: Nasal septal operation
     Route: 042
     Dates: start: 20210713, end: 20210713
  2. Citrizine [Concomitant]
  3. budesonide-formoterol fumarate [Concomitant]
  4. Aero Albuterol [Concomitant]
  5. Aers Epinephrine [Concomitant]
  6. Multiple Vitamins-Minerals [Concomitant]
  7. BIOTIN [Concomitant]
     Active Substance: BIOTIN
  8. CYANOCOBALAMIN [Concomitant]
     Active Substance: CYANOCOBALAMIN
  9. CALCIUM CARBONATE [Concomitant]
     Active Substance: CALCIUM CARBONATE

REACTIONS (6)
  - Urticaria physical [None]
  - Asthma [None]
  - Hypersensitivity [None]
  - Food allergy [None]
  - Impaired work ability [None]
  - Product temperature excursion issue [None]

NARRATIVE: CASE EVENT DATE: 20210713
